FAERS Safety Report 24259901 (Version 2)
Quarter: 2024Q3

REPORT INFORMATION
  Report Type: Spontaneous
  Country: CN (occurrence: CN)
  Receive Date: 20240828
  Receipt Date: 20240906
  Transmission Date: 20241016
  Serious: Yes (Hospitalization)
  Sender: ROCHE
  Company Number: CN-ROCHE-10000066595

PATIENT
  Age: 59 Year
  Sex: Female
  Weight: 54 kg

DRUGS (4)
  1. TRASTUZUMAB [Suspect]
     Active Substance: TRASTUZUMAB
     Indication: Breast cancer
     Route: 042
     Dates: start: 20240511
  2. TRASTUZUMAB [Suspect]
     Active Substance: TRASTUZUMAB
     Dosage: 2-JUL-2024, 26-JUL-2024 (360MG)
     Route: 042
     Dates: start: 20240612
  3. PERJETA [Suspect]
     Active Substance: PERTUZUMAB
     Indication: Breast cancer
     Dosage: THERAPY DATES:  2-JUL-2024, 26-JUL-2024 (420MG)
     Route: 065
     Dates: start: 20240612
  4. PERJETA [Suspect]
     Active Substance: PERTUZUMAB
     Dosage: THERAPY DATES:  2-JUL-2024, 26-JUL-2024 (420MG)
     Route: 065
     Dates: start: 20240511

REACTIONS (1)
  - Myelosuppression [Not Recovered/Not Resolved]

NARRATIVE: CASE EVENT DATE: 20240816
